FAERS Safety Report 6469341-0 (Version None)
Quarter: 2009Q4

REPORT INFORMATION
  Report Type: 
  Country: None (occurrence: None)
  Receive Date: 20091119
  Receipt Date: 20090901
  Transmission Date: 20100525
  Serious: No
  Sender: FDA-Public Use
  Company Number: WAES 0909USA00208

PATIENT
  Age: 52 Year
  Sex: Male
  Weight: 118.3888 kg

DRUGS (14)
  1. JANUVIA [Suspect]
     Indication: TYPE 2 DIABETES MELLITUS
     Dosage: 100MG/DAILY/PO
     Route: 048
     Dates: start: 20090819, end: 20090829
  2. AVAPRO [Concomitant]
  3. CLARITIN [Concomitant]
  4. CYMBALTA [Concomitant]
  5. DEPAKOTE [Concomitant]
  6. FLONASE [Concomitant]
  7. GLUCOTROL XL [Concomitant]
  8. LIPITOR [Concomitant]
  9. NUVIGIL [Concomitant]
  10. PREMARIN [Concomitant]
  11. ZEGERID [Concomitant]
  12. IBUPROFEN [Concomitant]
  13. OMEGA-3 MARINE TRIGLYCERIDES [Concomitant]
  14. VITAMINS (UNSPECIFIED) [Concomitant]

REACTIONS (1)
  - HAEMOPTYSIS [None]
